FAERS Safety Report 6974360-1 (Version None)
Quarter: 2010Q3

REPORT INFORMATION
  Report Type: 
  Country: None (occurrence: None)
  Receive Date: 20100909
  Receipt Date: 20080528
  Transmission Date: 20110219
  Serious: No
  Sender: FDA-Public Use
  Company Number: US-WYE-H04328508

PATIENT
  Sex: Female
  Weight: 63.56 kg

DRUGS (5)
  1. PROTONIX [Suspect]
     Indication: GASTROOESOPHAGEAL REFLUX DISEASE
     Route: 048
     Dates: start: 20070426
  2. PROTONIX [Suspect]
     Route: 048
     Dates: end: 20080201
  3. PROTONIX [Suspect]
     Route: 048
     Dates: start: 20080201
  4. CALCIUM [Concomitant]
  5. ACTONEL [Concomitant]

REACTIONS (7)
  - ABDOMINAL DISTENSION [None]
  - CONDITION AGGRAVATED [None]
  - DYSPHAGIA [None]
  - FLATULENCE [None]
  - GASTROOESOPHAGEAL REFLUX DISEASE [None]
  - HEADACHE [None]
  - SENSATION OF FOREIGN BODY [None]
